FAERS Safety Report 7515847-2 (Version None)
Quarter: 2011Q2

REPORT INFORMATION
  Report Type: 
  Country: None (occurrence: None)
  Receive Date: 20110601
  Receipt Date: 20110526
  Transmission Date: 20111010
  Serious: No
  Sender: FDA-Public Use
  Company Number: US-PFIZER INC-2011114968

PATIENT
  Sex: Female
  Weight: 61 kg

DRUGS (2)
  1. LYRICA [Concomitant]
     Indication: NERVOUS SYSTEM DISORDER
     Dosage: 50 MG, 2X/DAY
  2. ESTRING [Suspect]
     Indication: ATROPHIC VULVOVAGINITIS
     Dosage: UNK
     Route: 067
     Dates: end: 20110501

REACTIONS (2)
  - PRURITUS [None]
  - DRUG INEFFECTIVE [None]
